FAERS Safety Report 8044647-2 (Version None)
Quarter: 2012Q1

REPORT INFORMATION
  Report Type: 
  Country: None (occurrence: None)
  Receive Date: 20120113
  Receipt Date: 20120112
  Transmission Date: 20120608
  Serious: Yes (Hospitalization)
  Sender: FDA-Public Use
  Company Number: US-JNJFOC-NSADSS2002040166

PATIENT
  Age: 67 Year
  Sex: Female

DRUGS (5)
  1. LANOXIN [Concomitant]
     Indication: CARDIAC DISORDER
     Route: 048
  2. SUDAFED 24 HOUR [Suspect]
     Route: 048
  3. METOPROLOL [Concomitant]
     Indication: ESSENTIAL HYPERTENSION
     Route: 048
  4. SUDAFED 24 HOUR [Suspect]
     Indication: SINUS HEADACHE
     Route: 048
     Dates: start: 20021023, end: 20021023
  5. COUMADIN [Concomitant]
     Indication: PRODUCT USED FOR UNKNOWN INDICATION
     Route: 048

REACTIONS (4)
  - ILLUSION [None]
  - INSOMNIA [None]
  - CEREBROVASCULAR ACCIDENT [None]
  - OVERDOSE [None]
